FAERS Safety Report 7345056-1 (Version None)
Quarter: 2011Q1

REPORT INFORMATION
  Report Type: 
  Country: None (occurrence: None)
  Receive Date: 20110310
  Receipt Date: 20110228
  Transmission Date: 20110831
  Serious: Yes (Hospitalization)
  Sender: FDA-Public Use
  Company Number: US-ELI_LILLY_AND_COMPANY-US201101007401

PATIENT
  Sex: Female

DRUGS (18)
  1. IBUPROFEN [Concomitant]
  2. XALATAN [Concomitant]
     Indication: EYE DISORDER
  3. CRESTOR [Concomitant]
  4. FUROSEMIDE [Concomitant]
  5. HYDROCODONE BITARTRATE [Concomitant]
     Indication: PAIN
  6. CENTRUM SILVER [Concomitant]
  7. FORTEO [Suspect]
     Dosage: 20 UG, DAILY (1/D)
     Route: 065
  8. AMITRIPTYLINE [Concomitant]
  9. ACTOS [Concomitant]
  10. LOSARTAN POTASSIUM [Concomitant]
  11. LEVATOL [Concomitant]
  12. TRICOR [Concomitant]
  13. KLOR-CON [Concomitant]
  14. FORTEO [Suspect]
     Indication: OSTEOPOROSIS
     Dosage: 20 UG, DAILY (1/D)
     Route: 065
     Dates: start: 20110103
  15. FORTEO [Suspect]
     Dosage: 20 UG, DAILY (1/D)
     Route: 065
  16. FERGON [Concomitant]
  17. MIRALAX [Concomitant]
  18. GENERLAC [Concomitant]

REACTIONS (5)
  - MUSCULOSKELETAL CHEST PAIN [None]
  - BACK PAIN [None]
  - INFREQUENT BOWEL MOVEMENTS [None]
  - DECREASED APPETITE [None]
  - SPINAL FRACTURE [None]
